FAERS Safety Report 15200870 (Version 1)
Quarter: 2018Q3

REPORT INFORMATION
  Report Type: Spontaneous
  Country: GB (occurrence: GB)
  Receive Date: 20180726
  Receipt Date: 20180726
  Transmission Date: 20181010
  Serious: Yes (Other)
  Sender: FDA-Public Use
  Company Number: GB-ASTELLAS-2018US033039

PATIENT
  Age: 59 Year
  Sex: Male

DRUGS (1)
  1. TACROLIMUS. [Suspect]
     Active Substance: TACROLIMUS
     Indication: KERATOPLASTY
     Route: 048

REACTIONS (4)
  - Acanthamoeba infection [Recovering/Resolving]
  - Transplant rejection [Unknown]
  - Product use in unapproved indication [Unknown]
  - Scleritis [Recovered/Resolved]
